FAERS Safety Report 9496821 (Version 1)
Quarter: 2013Q3

REPORT INFORMATION
  Report Type: Spontaneous
  Country: US (occurrence: None)
  Receive Date: 20130903
  Receipt Date: 20130903
  Transmission Date: 20140515
  Serious: Yes (Other)
  Sender: FDA-Public Use
  Company Number: None

PATIENT
  Age: 52 Month
  Sex: Female
  Weight: 54.43 kg

DRUGS (2)
  1. VENLAFAXINE HCL [Suspect]
     Indication: DEPRESSION
     Dosage: 2 CAPS ONCE DAILY TAKEN BY MOUITH
     Route: 048
     Dates: start: 20030905, end: 20130828
  2. VENLAFAXINE HCL [Suspect]
     Indication: ANXIETY
     Dosage: 2 CAPS ONCE DAILY TAKEN BY MOUITH
     Route: 048
     Dates: start: 20030905, end: 20130828

REACTIONS (14)
  - Drug dose omission [None]
  - Drug withdrawal syndrome [None]
  - Visual impairment [None]
  - Cognitive disorder [None]
  - Gait disturbance [None]
  - Balance disorder [None]
  - Coordination abnormal [None]
  - Dizziness [None]
  - Diarrhoea [None]
  - Sleep terror [None]
  - Feeling abnormal [None]
  - Headache [None]
  - Chills [None]
  - Depressed mood [None]
